FAERS Safety Report 9198329 (Version 1)
Quarter: 2013Q1

REPORT INFORMATION
  Report Type: Spontaneous
  Country: US (occurrence: None)
  Receive Date: 20130327
  Receipt Date: 20130327
  Transmission Date: 20140127
  Serious: No
  Sender: FDA-Public Use
  Company Number: None

PATIENT
  Age: 49 Year
  Sex: Male

DRUGS (1)
  1. LOSARTAN  POTASSIUM [Suspect]
     Indication: BLOOD PRESSURE
     Dates: start: 20130124, end: 20130210

REACTIONS (2)
  - Burning sensation [None]
  - Wound [None]
